FAERS Safety Report 4297371-6 (Version None)
Quarter: 2004Q1

REPORT INFORMATION
  Report Type: 
  Country: None (occurrence: None)
  Receive Date: 20040213
  Receipt Date: 20040129
  Transmission Date: 20041129
  Serious: Yes (Other)
  Sender: FDA-Public Use
  Company Number: 2004-BP-00643YA

PATIENT
  Age: 66 Year
  Sex: Male

DRUGS (3)
  1. HARNAL (TAMSULOSIN) (NR) (TAMSULOSIN HYDROCHLORIDE) [Suspect]
     Indication: BENIGN PROSTATIC HYPERPLASIA
     Dosage: 0.2 MG (NR), PO
     Route: 048
     Dates: start: 20031217, end: 20031219
  2. NICARDIPINE HCL [Concomitant]
  3. .. [Suspect]

REACTIONS (8)
  - DISTURBANCE IN ATTENTION [None]
  - FALL [None]
  - FATIGUE [None]
  - HEADACHE [None]
  - LISTLESS [None]
  - LOSS OF CONSCIOUSNESS [None]
  - ORTHOSTATIC HYPOTENSION [None]
  - VISUAL ACUITY REDUCED [None]
